FAERS Safety Report 22040878 (Version 1)
Quarter: 2023Q1

REPORT INFORMATION
  Report Type: Spontaneous
  Country: GB (occurrence: GB)
  Receive Date: 20230227
  Receipt Date: 20230227
  Transmission Date: 20230417
  Serious: Yes (Other)
  Sender: FDA-Public Use
  Company Number: GB-MHRA-MED-202302171133223510-QKYTP

PATIENT
  Age: 51 Year
  Sex: Male

DRUGS (2)
  1. CIPROFLOXACIN [Suspect]
     Active Substance: CIPROFLOXACIN
     Indication: Orchitis
     Dosage: 500 MILLIGRAM, BID
     Route: 065
     Dates: start: 20230215, end: 20230216
  2. CIPROFLOXACIN [Suspect]
     Active Substance: CIPROFLOXACIN
     Indication: Orchitis noninfective

REACTIONS (3)
  - Back pain [Unknown]
  - Dizziness [Unknown]
  - Renal pain [Unknown]

NARRATIVE: CASE EVENT DATE: 20230216
